FAERS Safety Report 6279446-5 (Version None)
Quarter: 2009Q3

REPORT INFORMATION
  Report Type: 
  Country: None (occurrence: None)
  Receive Date: 20090723
  Receipt Date: 20090710
  Transmission Date: 20100115
  Serious: Yes (Other)
  Sender: FDA-Public Use
  Company Number: US-ROCHE-643402

PATIENT
  Sex: Female
  Weight: 58 kg

DRUGS (2)
  1. PEGASYS [Suspect]
     Indication: HEPATITIS C
     Route: 065
     Dates: start: 20090206
  2. COPEGUS [Suspect]
     Indication: HEPATITIS C
     Route: 065
     Dates: start: 20090206

REACTIONS (3)
  - COUGH [None]
  - INFLUENZA LIKE ILLNESS [None]
  - TUBERCULIN TEST POSITIVE [None]
